FAERS Safety Report 6749875-1 (Version None)
Quarter: 2010Q2

REPORT INFORMATION
  Report Type: 
  Country: None (occurrence: None)
  Receive Date: 20100601
  Receipt Date: 20100518
  Transmission Date: 20101027
  Serious: Yes (Hospitalization, Other)
  Sender: FDA-Public Use
  Company Number: US-ELI_LILLY_AND_COMPANY-US201004004846

PATIENT
  Sex: Female

DRUGS (5)
  1. FORTEO [Suspect]
     Indication: OSTEOPOROSIS
     Dosage: 20 UG, DAILY (1/D)
     Dates: start: 20090701, end: 20090801
  2. FORTEO [Suspect]
     Dosage: 20 UG, DAILY (1/D)
     Dates: start: 20090901
  3. DIGOXIN [Concomitant]
  4. ATENOLOL [Concomitant]
  5. CALCIUM CARBONATE [Concomitant]

REACTIONS (3)
  - AORTIC ANEURYSM [None]
  - MUSCLE SPASMS [None]
  - PNEUMONIA [None]
